FAERS Safety Report 10203124 (Version 2)
Quarter: 2014Q2

REPORT INFORMATION
  Report Type: Spontaneous
  Country: US (occurrence: US)
  Receive Date: 20140529
  Receipt Date: 20140612
  Transmission Date: 20141212
  Serious: Yes (Life-Threatening, Other)
  Sender: FDA-Public Use
  Company Number: US-GLENMARK GENERICS INC.-2014GMK009601

PATIENT
  Age: 49 Year
  Sex: Male

DRUGS (2)
  1. METFORMIN [Suspect]
     Indication: DIABETES MELLITUS
     Dosage: UNK
  2. HALOPERIDOL [Concomitant]
     Indication: SCHIZOPHRENIA
     Dosage: UNK

REACTIONS (10)
  - Blood glucose decreased [Unknown]
  - Haemodynamic instability [Unknown]
  - Anuria [Unknown]
  - Unresponsive to stimuli [Unknown]
  - Toxicity to various agents [Unknown]
  - Lactic acidosis [Unknown]
  - Overdose [Unknown]
  - Hypokinesia [Unknown]
  - Lethargy [Unknown]
  - Dysarthria [Unknown]
